FAERS Safety Report 13828081 (Version 1)
Quarter: 2017Q3

REPORT INFORMATION
  Report Type: Report from Study
  Country: US (occurrence: US)
  Receive Date: 20170803
  Receipt Date: 20170803
  Transmission Date: 20171127
  Serious: Yes (Hospitalization, Disabling, Other)
  Sender: FDA-Public Use
  Company Number: US-ROCHE-1971165

PATIENT
  Age: 73 Year
  Sex: Male

DRUGS (17)
  1. VENCLEXTA [Suspect]
     Active Substance: VENETOCLAX
     Route: 048
  2. IBRUTINIB [Concomitant]
     Active Substance: IBRUTINIB
     Dosage: 8 HOURS
     Route: 065
  3. BENDAMUSTINE [Concomitant]
     Active Substance: BENDAMUSTINE
  4. VENCLEXTA [Suspect]
     Active Substance: VENETOCLAX
     Dosage: ONGOING:NO
     Route: 048
     Dates: start: 201612, end: 201701
  5. RITUXAN [Suspect]
     Active Substance: RITUXIMAB
     Indication: PRODUCT USED FOR UNKNOWN INDICATION
     Route: 065
  6. SOLU-MEDROL [Concomitant]
     Active Substance: METHYLPREDNISOLONE SODIUM SUCCINATE
  7. AMOXICILLIN. [Concomitant]
     Active Substance: AMOXICILLIN
     Route: 065
  8. REVLIMID [Concomitant]
     Active Substance: LENALIDOMIDE
  9. CYTARABINE. [Concomitant]
     Active Substance: CYTARABINE
     Dosage: 6 HOURS
     Route: 048
  10. VENCLEXTA [Suspect]
     Active Substance: VENETOCLAX
     Indication: MANTLE CELL LYMPHOMA
     Dosage: ONGOING:NO
     Route: 048
     Dates: start: 20160726, end: 20160906
  11. IBUPROFEN. [Concomitant]
     Active Substance: IBUPROFEN
  12. DEXAMETHASONE. [Concomitant]
     Active Substance: DEXAMETHASONE
  13. PREDNISONE. [Concomitant]
     Active Substance: PREDNISONE
  14. VENCLEXTA [Suspect]
     Active Substance: VENETOCLAX
     Dosage: ONGOING:NO
     Route: 048
     Dates: start: 201610, end: 201611
  15. VENCLEXTA [Suspect]
     Active Substance: VENETOCLAX
     Dosage: ONGOING:NO
     Route: 048
     Dates: start: 20161201, end: 201612
  16. VENCLEXTA [Suspect]
     Active Substance: VENETOCLAX
     Dosage: ONGOING:NO
     Route: 048
     Dates: start: 201701, end: 20170119
  17. VENCLEXTA [Suspect]
     Active Substance: VENETOCLAX
     Route: 048

REACTIONS (23)
  - Multiple sclerosis [Unknown]
  - Ileus [Unknown]
  - Platelet count decreased [Recovered/Resolved]
  - Lymphadenopathy [Recovered/Resolved]
  - Diarrhoea [Unknown]
  - Decreased appetite [Unknown]
  - Irritable bowel syndrome [Recovered/Resolved]
  - Insomnia [Unknown]
  - Intentional product use issue [Unknown]
  - Hypoaesthesia [Unknown]
  - Vasogenic cerebral oedema [Unknown]
  - Neutropenia [Unknown]
  - Mantle cell lymphoma [Unknown]
  - Asthenia [Unknown]
  - Toothache [Unknown]
  - Peripheral coldness [Unknown]
  - Deafness [Not Recovered/Not Resolved]
  - Blindness [Unknown]
  - Confusional state [Unknown]
  - Thrombocytopenia [Unknown]
  - Paraesthesia [Unknown]
  - Constipation [Unknown]
  - Off label use [Unknown]

NARRATIVE: CASE EVENT DATE: 201609
